FAERS Safety Report 4423938-8 (Version None)
Quarter: 2004Q3

REPORT INFORMATION
  Report Type: 
  Country: None (occurrence: None)
  Receive Date: 20040805
  Receipt Date: 20040727
  Transmission Date: 20050211
  Serious: Yes (Other)
  Sender: FDA-Public Use
  Company Number: 2004225190AR

PATIENT
  Age: 40 Year
  Sex: Female
  Weight: 92 kg

DRUGS (2)
  1. RONTAGEL (ESTRADIOL) GEL [Suspect]
     Indication: HORMONE REPLACEMENT THERAPY
     Dosage: 2 MG, QD, ORAL
     Route: 048
     Dates: start: 19971001
  2. CARVEDILOL [Concomitant]

REACTIONS (3)
  - ALOPECIA [None]
  - CHLOASMA [None]
  - HYPERTENSION [None]
